FAERS Safety Report 19745589 (Version 2)
Quarter: 2021Q3

REPORT INFORMATION
  Report Type: Spontaneous
  Country: JP (occurrence: JP)
  Receive Date: 20210825
  Receipt Date: 20210909
  Transmission Date: 20211014
  Serious: Yes (Hospitalization, Other)
  Sender: FDA-Public Use
  Company Number: JP-SA-2021SA281247

PATIENT
  Age: 69 Year
  Sex: Male

DRUGS (3)
  1. FLUOROURACIL. [Suspect]
     Active Substance: FLUOROURACIL
     Indication: COLON CANCER
     Dosage: 50% DOSE
  2. FOLINIC ACID [Suspect]
     Active Substance: LEUCOVORIN
     Indication: COLON CANCER
     Dosage: 50% DOSE
  3. ELPLAT [Suspect]
     Active Substance: OXALIPLATIN
     Indication: COLON CANCER
     Dosage: 50% DOSE
     Route: 041

REACTIONS (8)
  - Hepatic encephalopathy [Recovering/Resolving]
  - Hepatic function abnormal [Unknown]
  - Hyperammonaemia [Recovering/Resolving]
  - Altered state of consciousness [Recovering/Resolving]
  - Malaise [Recovering/Resolving]
  - Disorientation [Recovering/Resolving]
  - Decreased appetite [Recovering/Resolving]
  - Tumour lysis syndrome [Unknown]
